FAERS Safety Report 5176868-0 (Version None)
Quarter: 2006Q4

REPORT INFORMATION
  Report Type: 
  Country: None (occurrence: None)
  Receive Date: 20061212
  Receipt Date: 20061212
  Transmission Date: 20070319
  Serious: Yes (Other)
  Sender: FDA-Public Use
  Company Number: None

PATIENT
  Age: 27 Year
  Sex: Male

DRUGS (4)
  1. GEODON [Suspect]
     Indication: PSYCHOTIC DISORDER
     Dosage: 120 MG BID PO
     Route: 048
     Dates: start: 20060926, end: 20061101
  2. COGENTIN [Concomitant]
  3. TETRACYCLINE [Concomitant]
  4. HALDOL [Concomitant]

REACTIONS (4)
  - ANGER [None]
  - FACE OEDEMA [None]
  - OEDEMA PERIPHERAL [None]
  - RASH ERYTHEMATOUS [None]
